FAERS Safety Report 11692527 (Version 2)
Quarter: 2015Q4

REPORT INFORMATION
  Report Type: Spontaneous
  Country: US (occurrence: US)
  Receive Date: 20151103
  Receipt Date: 20151106
  Transmission Date: 20160304
  Serious: No
  Sender: FDA-Public Use
  Company Number: US-PFIZER INC-2015350410

PATIENT
  Age: 68 Year
  Sex: Male
  Weight: 77 kg

DRUGS (12)
  1. CLOPIDOGREL BISULFATE. [Concomitant]
     Active Substance: CLOPIDOGREL BISULFATE
     Dosage: 75 MG, 1X/DAY
  2. LIPITOR [Concomitant]
     Active Substance: ATORVASTATIN CALCIUM
     Dosage: 40 MG, 1X/DAY
  3. LOPRESSOR [Concomitant]
     Active Substance: METOPROLOL TARTRATE
     Dosage: 25 MG, 3X/DAY
  4. STOOL SOFTENER [Concomitant]
     Active Substance: DOCUSATE CALCIUM
     Dosage: UNK
  5. NITRO-GLYCERINE PATCHES [Concomitant]
     Indication: ANGINA UNSTABLE
     Dosage: 0.4 MG, 1X/DAY, (0.2MG ON RIGHT CHEST AND 0.2 MG ON LEFT CHEST PLACED ON AROUND NOON EVERY DAY)
  6. VERAPAMIL HCL [Suspect]
     Active Substance: VERAPAMIL HYDROCHLORIDE
     Indication: ATRIAL FIBRILLATION
     Dosage: 240MG AT NOON AND 120MG AT NIGHT.
  7. ZETIA [Concomitant]
     Active Substance: EZETIMIBE
     Indication: BLOOD CHOLESTEROL INCREASED
     Dosage: 10 MG, UNK
  8. VERAPAMIL HCL [Suspect]
     Active Substance: VERAPAMIL HYDROCHLORIDE
     Indication: HYPERTENSION
     Dosage: 180 MG, 1X/DAY
     Route: 048
     Dates: start: 2005, end: 2014
  9. ASPIRIN. [Concomitant]
     Active Substance: ASPIRIN
     Dosage: 325 MG, 1X/DAY
  10. LORAZEPAM. [Concomitant]
     Active Substance: LORAZEPAM
     Dosage: 1MG AT 09:00AM, 0.5MG AT 4PM; 1MG; 1MG AT 07:30PM; 1MG AT 11:30PM
  11. PREVACID [Concomitant]
     Active Substance: LANSOPRAZOLE
     Dosage: 30 MG, UNK
  12. SERTRALINE HYDROCHLORIDE. [Concomitant]
     Active Substance: SERTRALINE HYDROCHLORIDE
     Dosage: 100 MG, AT 9AM AND AT 11:30PM

REACTIONS (6)
  - Wrong technique in product usage process [Unknown]
  - Blood pressure inadequately controlled [Unknown]
  - Sinus bradycardia [Unknown]
  - Therapeutic response unexpected [Unknown]
  - Blood pressure decreased [Unknown]
  - Diastolic dysfunction [Unknown]

NARRATIVE: CASE EVENT DATE: 2014
